FAERS Safety Report 9870061 (Version 1)
Quarter: 2014Q1

REPORT INFORMATION
  Report Type: Spontaneous
  Country: US (occurrence: None)
  Receive Date: 20140203
  Receipt Date: 20140203
  Transmission Date: 20141002
  Serious: No
  Sender: FDA-Public Use
  Company Number: None

PATIENT
  Sex: 0

DRUGS (2)
  1. VASOPRESSIN [Suspect]
     Dosage: INJECTABLE  IM OR SC USE
  2. THIAMINE HYDROCHLORIDE [Suspect]
     Dosage: INJECTABLE IM OR IV USE

REACTIONS (3)
  - Medication error [None]
  - Circumstance or information capable of leading to medication error [None]
  - Product container issue [None]
